FAERS Safety Report 23458385 (Version 6)
Quarter: 2024Q2

REPORT INFORMATION
  Report Type: Spontaneous
  Country: US (occurrence: US)
  Receive Date: 20240130
  Receipt Date: 20240502
  Transmission Date: 20240716
  Serious: Yes (Hospitalization, Other)
  Sender: FDA-Public Use
  Company Number: US-Stemline Therapeutics, Inc.-2024ST000479

PATIENT
  Age: 78 Year
  Sex: Female

DRUGS (1)
  1. ORSERDU [Suspect]
     Active Substance: ELACESTRANT
     Indication: Product used for unknown indication
     Route: 048
     Dates: start: 20231228

REACTIONS (12)
  - Atrial fibrillation [Unknown]
  - Tachycardia [Unknown]
  - Fluid retention [Unknown]
  - Ear pain [Recovered/Resolved]
  - Weight increased [Unknown]
  - Oedema [Unknown]
  - Drug interaction [Unknown]
  - Carbohydrate antigen 125 increased [Unknown]
  - Tumour marker increased [Unknown]
  - Nervousness [Unknown]
  - Fatigue [Unknown]
  - Headache [Recovered/Resolved]
